FAERS Safety Report 8975017 (Version 1)
Quarter: 2012Q4

REPORT INFORMATION
  Report Type: 
  Country: GB (occurrence: GB)
  Receive Date: 20121219
  Receipt Date: 20121219
  Transmission Date: 20130627
  Serious: Yes (Other)
  Sender: FDA-Public Use
  Company Number: GB-ELI_LILLY_AND_COMPANY-GB201211003161

PATIENT
  Age: 15 Year
  Sex: Male

DRUGS (1)
  1. ATOMOXETINE HYDROCHLORIDE [Suspect]

REACTIONS (3)
  - Suicidal ideation [Recovered/Resolved]
  - Acne [Unknown]
  - Nausea [Recovered/Resolved]
